FAERS Safety Report 8189886-5 (Version None)
Quarter: 2012Q1

REPORT INFORMATION
  Report Type: 
  Country: None (occurrence: None)
  Receive Date: 20120307
  Receipt Date: 20120229
  Transmission Date: 20120608
  Serious: Yes (Other)
  Sender: FDA-Public Use
  Company Number: US-JNJFOC-20120300994

PATIENT
  Sex: Male
  Weight: 83.01 kg

DRUGS (3)
  1. PROPULSID [Suspect]
     Indication: GASTROINTESTINAL MOTILITY DISORDER
     Route: 048
     Dates: start: 20070209
  2. PRIMIDONE [Concomitant]
     Route: 048
     Dates: start: 20111019
  3. PROPULSID [Suspect]
     Indication: GASTROOESOPHAGEAL REFLUX DISEASE
     Route: 048
     Dates: start: 20070209

REACTIONS (1)
  - ELECTROCARDIOGRAM QT PROLONGED [None]
